FAERS Safety Report 8249337-9 (Version None)
Quarter: 2012Q2

REPORT INFORMATION
  Report Type: 
  Country: None (occurrence: None)
  Receive Date: 20120402
  Receipt Date: 20120322
  Transmission Date: 20120825
  Serious: Yes (Hospitalization, Other)
  Sender: FDA-Public Use
  Company Number: CA-JNJFOC-20090500662

PATIENT
  Sex: Male
  Weight: 60.2 kg

DRUGS (3)
  1. REMICADE [Suspect]
     Route: 042
     Dates: start: 20090501, end: 20100608
  2. REMICADE [Suspect]
     Dosage: 4 INFUSIONS ON UNSPECIFIED DATES
     Route: 042
     Dates: start: 20080925
  3. REMICADE [Suspect]
     Indication: ANKYLOSING SPONDYLITIS
     Dosage: 100 MG/VIAL
     Route: 042
     Dates: start: 20090303

REACTIONS (2)
  - ARTHRALGIA [None]
  - JOINT SWELLING [None]
